FAERS Safety Report 21417054 (Version 1)
Quarter: 2022Q4

REPORT INFORMATION
  Report Type: Spontaneous
  Country: US (occurrence: US)
  Receive Date: 20221006
  Receipt Date: 20221006
  Transmission Date: 20230112
  Serious: No
  Sender: FDA-Public Use
  Company Number: US-PFIZER INC-202201204532

PATIENT
  Age: 63 Year
  Sex: Female
  Weight: 95.25 kg

DRUGS (2)
  1. PAXLOVID [Suspect]
     Active Substance: NIRMATRELVIR\RITONAVIR
     Indication: COVID-19 treatment
     Dosage: UNK
     Dates: start: 20220922, end: 20220926
  2. ATORVASTATIN [Concomitant]
     Active Substance: ATORVASTATIN
     Dosage: UNK

REACTIONS (8)
  - COVID-19 [Unknown]
  - Disease recurrence [Unknown]
  - Herpes zoster [Unknown]
  - Pain [Unknown]
  - Blister [Unknown]
  - Burning sensation [Unknown]
  - Erythema [Unknown]
  - Product dispensing error [Unknown]

NARRATIVE: CASE EVENT DATE: 20220923
